FAERS Safety Report 10415870 (Version 1)
Quarter: 2014Q3

REPORT INFORMATION
  Report Type: Spontaneous
  Country: US (occurrence: None)
  Receive Date: 20140827
  Receipt Date: 20140827
  Transmission Date: 20150326
  Serious: No
  Sender: FDA-Public Use
  Company Number: None

PATIENT
  Age: 51 Year
  Sex: Male

DRUGS (13)
  1. ALLOPURINOL. [Concomitant]
     Active Substance: ALLOPURINOL
  2. FLOVENT [Concomitant]
     Active Substance: FLUTICASONE PROPIONATE
  3. INDOMETHACIN. [Concomitant]
     Active Substance: INDOMETHACIN
  4. VITAMIN D [Concomitant]
     Active Substance: CHOLECALCIFEROL
  5. CYMBALTA [Concomitant]
     Active Substance: DULOXETINE HYDROCHLORIDE
  6. FAMICYCLOVIR [Concomitant]
  7. ACYCLOVIR. [Concomitant]
     Active Substance: ACYCLOVIR
  8. LISINOPRIL. [Concomitant]
     Active Substance: LISINOPRIL
  9. ATENOLOL. [Concomitant]
     Active Substance: ATENOLOL
  10. OXYCODONE [Concomitant]
     Active Substance: OXYCODONE
  11. VENTOLIN [Concomitant]
     Active Substance: ALBUTEROL SULFATE
  12. GABAPENTIN. [Suspect]
     Active Substance: GABAPENTIN
     Indication: PAIN
     Route: 048
     Dates: start: 20140812, end: 20140816
  13. FENOFIBRATE. [Concomitant]
     Active Substance: FENOFIBRATE

REACTIONS (2)
  - Therapy cessation [None]
  - Anhedonia [None]

NARRATIVE: CASE EVENT DATE: 20140825
